FAERS Safety Report 7047834-5 (Version None)
Quarter: 2010Q4

REPORT INFORMATION
  Report Type: 
  Country: None (occurrence: None)
  Receive Date: 20101015
  Receipt Date: 20101008
  Transmission Date: 20110411
  Serious: No
  Sender: FDA-Public Use
  Company Number: US-PFIZER INC-2010129046

PATIENT
  Sex: Female
  Weight: 47.619 kg

DRUGS (2)
  1. LYRICA [Suspect]
     Indication: PAIN IN EXTREMITY
     Dosage: 75 MG, 2X/DAY
     Route: 048
     Dates: start: 20100917
  2. CLONAZEPAM [Concomitant]
     Indication: HYPERTENSION
     Dosage: UNK

REACTIONS (1)
  - DRUG INEFFECTIVE [None]
